FAERS Safety Report 15795728 (Version 1)
Quarter: 2019Q1

REPORT INFORMATION
  Report Type: Spontaneous
  Country: FR (occurrence: FR)
  Receive Date: 20190107
  Receipt Date: 20190107
  Transmission Date: 20190417
  Serious: Yes (Other)
  Sender: FDA-Public Use
  Company Number: FR-MYLANLABS-2019M1000011

PATIENT
  Age: 73 Year
  Sex: Female

DRUGS (5)
  1. TRAMADOL. [Suspect]
     Active Substance: TRAMADOL
     Indication: PAIN
     Dosage: 50 MILLIGRAM, Q4H
     Route: 048
     Dates: start: 20170707
  2. OFLOXACINE ARROW [Suspect]
     Active Substance: OFLOXACIN
     Indication: ARTHRITIS BACTERIAL
     Dosage: 400 MILLIGRAM, QD
     Route: 048
     Dates: start: 20170714, end: 20170804
  3. ACUPAN [Suspect]
     Active Substance: NEFOPAM HYDROCHLORIDE
     Indication: PAIN
     Dosage: UNK (NON RENSEIGNEE)
     Route: 042
     Dates: start: 20170707, end: 20170719
  4. RIFADINE                           /00146902/ [Suspect]
     Active Substance: RIFAMPIN SODIUM
     Indication: ARTHRITIS BACTERIAL
     Dosage: 1200 MILLIGRAM, QD (MATIN ET SOIR)
     Route: 048
     Dates: start: 20170714, end: 20170804
  5. SPECIAFOLDINE [Suspect]
     Active Substance: FOLIC ACID
     Indication: ALCOHOLISM
     Dosage: 5 MILLIGRAM, QD (LE MATIN)
     Route: 048
     Dates: start: 20170707

REACTIONS (1)
  - Hyperbilirubinaemia [Recovered/Resolved]

NARRATIVE: CASE EVENT DATE: 20170717
